FAERS Safety Report 21103070 (Version 1)
Quarter: 2022Q3

REPORT INFORMATION
  Report Type: Spontaneous
  Country: GB (occurrence: GB)
  Receive Date: 20220720
  Receipt Date: 20220720
  Transmission Date: 20221027
  Serious: Yes (Hospitalization, Other)
  Sender: FDA-Public Use
  Company Number: GB-MHRA-MED-202207080402124230-DBMCT

PATIENT
  Age: 40 Year
  Sex: Male
  Weight: 96 kg

DRUGS (1)
  1. NAPROXEN [Suspect]
     Active Substance: NAPROXEN
     Indication: Neck pain
     Dosage: 500 MILLIGRAM
     Route: 065
     Dates: start: 20190801, end: 20220224

REACTIONS (5)
  - Heart rate increased [Recovering/Resolving]
  - Palpitations [Recovering/Resolving]
  - Cardiac flutter [Recovering/Resolving]
  - Hypertension [Recovering/Resolving]
  - Extrasystoles [Recovering/Resolving]

NARRATIVE: CASE EVENT DATE: 20190801
